FAERS Safety Report 6346954-8 (Version None)
Quarter: 2009Q3

REPORT INFORMATION
  Report Type: 
  Country: None (occurrence: None)
  Receive Date: 20090909
  Receipt Date: 20090909
  Transmission Date: 20100115
  Serious: Yes (Other)
  Sender: FDA-Public Use
  Company Number: None

PATIENT
  Sex: Male
  Weight: 104.3273 kg

DRUGS (1)
  1. CHANTIX [Suspect]
     Indication: SMOKING CESSATION THERAPY

REACTIONS (8)
  - CLAUSTROPHOBIA [None]
  - DEPRESSION [None]
  - INSOMNIA [None]
  - MANIA [None]
  - MEMORY IMPAIRMENT [None]
  - PANIC ATTACK [None]
  - PHOBIA [None]
  - SUICIDAL IDEATION [None]
